FAERS Safety Report 6471217-X (Version None)
Quarter: 2009Q4

REPORT INFORMATION
  Report Type: 
  Country: None (occurrence: None)
  Receive Date: 20091203
  Receipt Date: 20080128
  Transmission Date: 20100525
  Serious: Yes (Other)
  Sender: FDA-Public Use
  Company Number: US-ELI_LILLY_AND_COMPANY-US200801006267

PATIENT
  Sex: Female

DRUGS (5)
  1. BYETTA [Suspect]
     Indication: TYPE 2 DIABETES MELLITUS
     Dosage: 5 UG, 2/D
     Route: 058
     Dates: start: 20050801
  2. ACTOS [Concomitant]
     Indication: DIABETES MELLITUS
     Dosage: UNK, UNKNOWN
     Dates: end: 20050101
  3. AVAPRO [Concomitant]
     Indication: HYPERTENSION
     Dosage: 75 MG, DAILY (1/D)
     Dates: start: 19980101
  4. VITAMINS [Concomitant]
     Dosage: UNK, UNKNOWN
  5. MOBIC [Concomitant]
     Indication: ARTHRITIS
     Dosage: UNK, AS NEEDED

REACTIONS (5)
  - ABDOMINAL DISTENSION [None]
  - BLOOD GLUCOSE DECREASED [None]
  - ESSENTIAL THROMBOCYTHAEMIA [None]
  - MYELOPROLIFERATIVE DISORDER [None]
  - NAUSEA [None]
